FAERS Safety Report 6040414-X (Version None)
Quarter: 2009Q1

REPORT INFORMATION
  Report Type: 
  Country: None (occurrence: None)
  Receive Date: 20090116
  Receipt Date: 20080307
  Transmission Date: 20090719
  Serious: No
  Sender: FDA-Public Use
  Company Number: US-BRISTOL-MYERS SQUIBB COMPANY-14106868

PATIENT

DRUGS (1)
  1. ABILIFY [Suspect]
     Dosage: PRESENT DOSAGE 10MG AT BEDTIME,PREVIOUSLY 5MG ONCE IN THE AFTERNOON AND ONCE AT BEDTIME
     Route: 048

REACTIONS (1)
  - AGITATION [None]
